FAERS Safety Report 25860295 (Version 1)
Quarter: 2025Q3

REPORT INFORMATION
  Report Type: Report from Study
  Country: BR (occurrence: BR)
  Receive Date: 20250929
  Receipt Date: 20250929
  Transmission Date: 20251020
  Serious: Yes (Other)
  Sender: NOVARTIS
  Company Number: BR-002147023-NVSC2025BR151304

PATIENT
  Sex: Female

DRUGS (8)
  1. ZOMETA [Suspect]
     Active Substance: ZOLEDRONIC ACID
     Indication: Product used for unknown indication
     Route: 065
     Dates: start: 20240611
  2. ALENDRONATE SODIUM [Suspect]
     Active Substance: ALENDRONATE SODIUM
     Indication: Product used for unknown indication
     Route: 065
     Dates: end: 2021
  3. ALENDRONATE SODIUM [Suspect]
     Active Substance: ALENDRONATE SODIUM
     Route: 065
     Dates: end: 2022
  4. KISQALI [Suspect]
     Active Substance: RIBOCICLIB SUCCINATE
     Indication: Breast cancer female
     Route: 065
  5. PAMIDRONATE [Concomitant]
     Active Substance: PAMIDRONATE DISODIUM
     Indication: Product used for unknown indication
     Route: 065
     Dates: start: 2011
  6. PAMIDRONATE [Concomitant]
     Active Substance: PAMIDRONATE DISODIUM
     Route: 065
  7. ANASTROZOLE [Concomitant]
     Active Substance: ANASTROZOLE
     Indication: Product used for unknown indication
     Route: 065
  8. TAMOXIFEN [Concomitant]
     Active Substance: TAMOXIFEN
     Indication: Product used for unknown indication
     Route: 065

REACTIONS (9)
  - Femur fracture [Recovered/Resolved]
  - Breast cancer female [Unknown]
  - Malignant neoplasm progression [Unknown]
  - Metastases to bone [Unknown]
  - Exposed bone in jaw [Recovered/Resolved]
  - Bone fragmentation [Unknown]
  - Pain [Recovered/Resolved]
  - Rib fracture [Recovered/Resolved]
  - Ill-defined disorder [Unknown]
